FAERS Safety Report 6334558-2 (Version None)
Quarter: 2009Q3

REPORT INFORMATION
  Report Type: 
  Country: None (occurrence: None)
  Receive Date: 20090831
  Receipt Date: 20090818
  Transmission Date: 20100115
  Serious: Yes (Other)
  Sender: FDA-Public Use
  Company Number: PHHY2009CA33502

PATIENT

DRUGS (14)
  1. DIOVAN T30230++HY [Suspect]
     Dosage: 320 MG
  2. CALCIUM CHANNEL BLOCKERS [Concomitant]
  3. DIURETICS [Concomitant]
  4. NOVOLIN R [Concomitant]
     Dosage: 25-30 U
     Route: 058
  5. GLYBURIDE [Concomitant]
     Dosage: 5 MG,2 TABLETS 2 TIMES/DAY
  6. APO-FUROSEMIDE [Concomitant]
     Dosage: 40 MG, QD
  7. METFORMIN HCL [Concomitant]
     Dosage: 500 MG, BID
  8. ASAPHEN [Concomitant]
     Dosage: 1 TABLET/DAY
  9. EZETROL [Concomitant]
     Dosage: 10 MG, QD
  10. LIPITOR [Concomitant]
     Dosage: 40 MG, QD
  11. GLUCOBAY [Concomitant]
     Dosage: 100 MG, BID
  12. TIAZAC [Concomitant]
     Dosage: 360 MG, QD
  13. CELEBREX [Concomitant]
     Dosage: 200 MG, QD
  14. CLINDOXYL [Concomitant]
     Dosage: ONCE DAILY

REACTIONS (3)
  - BLOOD GLUCOSE ABNORMAL [None]
  - MICROALBUMINURIA [None]
  - URINE ALBUMIN/CREATININE RATIO INCREASED [None]
